FAERS Safety Report 19243706 (Version 2)
Quarter: 2022Q1

REPORT INFORMATION
  Report Type: Other
  Country: US (occurrence: None)
  Receive Date: 20210511
  Receipt Date: 20220222
  Transmission Date: 20220424
  Serious: Yes (Death)
  Sender: FDA-Public Use
  Company Number: US-ROCHE-2827422

PATIENT
  Age: 67 Year
  Sex: Male

DRUGS (1)
  1. TECENTRIQ [Suspect]
     Active Substance: ATEZOLIZUMAB
     Indication: Prostate cancer
     Route: 042

REACTIONS (2)
  - Death [Fatal]
  - Off label use [Fatal]

NARRATIVE: CASE EVENT DATE: 20210504
